FAERS Safety Report 9785775 (Version 2)
Quarter: 2014Q1

REPORT INFORMATION
  Report Type: Spontaneous
  Country: CA (occurrence: CA)
  Receive Date: 20131227
  Receipt Date: 20140117
  Transmission Date: 20141002
  Serious: Yes (Hospitalization, Other)
  Sender: FDA-Public Use
  Company Number: CA-ASTRAZENECA-2013SE92984

PATIENT
  Age: 33 Year
  Sex: Male
  Weight: 92.8 kg

DRUGS (5)
  1. CRESTOR [Suspect]
     Route: 048
     Dates: start: 20070524
  2. EZETROL [Concomitant]
     Indication: HYPERCHOLESTEROLAEMIA
     Route: 048
  3. KEPRA [Concomitant]
     Route: 048
  4. PANTOPRAZOL [Concomitant]
     Route: 048
     Dates: end: 201002
  5. TEGRETOL [Concomitant]

REACTIONS (2)
  - Diabetes insipidus [Recovering/Resolving]
  - Oligodendroglioma [Unknown]
